FAERS Safety Report 24151403 (Version 2)
Quarter: 2024Q3

REPORT INFORMATION
  Report Type: Spontaneous
  Country: ID (occurrence: ID)
  Receive Date: 20240730
  Receipt Date: 20240812
  Transmission Date: 20241017
  Serious: Yes (Death)
  Sender: ROCHE
  Company Number: ID-ROCHE-10000034903

PATIENT

DRUGS (1)
  1. FARICIMAB [Suspect]
     Active Substance: FARICIMAB
     Indication: Product used for unknown indication
     Dosage: ON 05/FEB/2024, RECEIVED LAST DOSE OF FARICIMAB.
     Route: 065

REACTIONS (1)
  - Death [Fatal]
